FAERS Safety Report 26055635 (Version 1)
Quarter: 2025Q4

REPORT INFORMATION
  Report Type: Spontaneous
  Country: EU (occurrence: EU)
  Receive Date: 20251117
  Receipt Date: 20251117
  Transmission Date: 20260118
  Serious: Yes (Hospitalization)
  Sender: AMGEN
  Company Number: None

PATIENT
  Age: 39 Year
  Sex: Male

DRUGS (2)
  1. ADALIMUMAB [Suspect]
     Active Substance: ADALIMUMAB
     Indication: Colitis ulcerative
     Dosage: 40 MILLIGRAM, QWK
     Route: 058
     Dates: start: 20250129, end: 20251014
  2. MESALAMINE [Suspect]
     Active Substance: MESALAMINE
     Indication: Colitis ulcerative
     Dosage: 4 GRAM, QD
     Route: 048
     Dates: start: 20230816, end: 20251014

REACTIONS (1)
  - Tubulointerstitial nephritis [Unknown]

NARRATIVE: CASE EVENT DATE: 20250408
